FAERS Safety Report 7984143-1 (Version None)
Quarter: 2011Q4

REPORT INFORMATION
  Report Type: 
  Country: None (occurrence: None)
  Receive Date: 20111216
  Receipt Date: 20111214
  Transmission Date: 20120403
  Serious: Yes (Hospitalization, Other)
  Sender: FDA-Public Use
  Company Number: US-PFIZER INC-2011304917

PATIENT
  Sex: Female
  Weight: 77.098 kg

DRUGS (4)
  1. IRON [Concomitant]
     Dosage: UNK
  2. ASCORBIC ACID [Concomitant]
     Dosage: UNK
  3. VITAMIN D [Concomitant]
     Dosage: UNK
  4. LIPITOR [Suspect]
     Indication: STENT PLACEMENT
     Dosage: 10 MG, 1X/DAY
     Route: 048

REACTIONS (4)
  - DIVERTICULUM INTESTINAL HAEMORRHAGIC [None]
  - BACK PAIN [None]
  - DIVERTICULUM [None]
  - BLOOD DISORDER [None]
